FAERS Safety Report 16893630 (Version 2)
Quarter: 2025Q1

REPORT INFORMATION
  Report Type: Spontaneous
  Country: US (occurrence: US)
  Receive Date: 20191008
  Receipt Date: 20250204
  Transmission Date: 20250409
  Serious: Yes (Death, Other)
  Sender: ROCHE
  Company Number: US-ROCHE-2433966

PATIENT
  Age: 8 Year
  Sex: Female

DRUGS (12)
  1. MYCOPHENOLATE MOFETIL [Suspect]
     Active Substance: MYCOPHENOLATE MOFETIL
     Indication: Prophylaxis against transplant rejection
     Route: 065
  2. RIBAVIRIN [Suspect]
     Active Substance: RIBAVIRIN
     Indication: Pneumonia adenoviral
     Route: 040
  3. RIBAVIRIN [Suspect]
     Active Substance: RIBAVIRIN
     Route: 040
  4. RIBAVIRIN [Suspect]
     Active Substance: RIBAVIRIN
     Route: 040
  5. TACROLIMUS [Suspect]
     Active Substance: TACROLIMUS
     Indication: Prophylaxis against transplant rejection
     Route: 065
  6. METHYLPREDNISOLONE [Suspect]
     Active Substance: METHYLPREDNISOLONE
     Indication: Prophylaxis against transplant rejection
     Route: 040
  7. AMPHOTERICIN B [Concomitant]
     Active Substance: AMPHOTERICIN B
  8. POLYMYXIN [Concomitant]
     Active Substance: POLYMYXIN
  9. GENTAMICIN [Concomitant]
     Active Substance: GENTAMICIN
  10. GANCICLOVIR [Concomitant]
     Active Substance: GANCICLOVIR
     Route: 040
  11. NEOMYCIN SULFATE [Concomitant]
     Active Substance: NEOMYCIN SULFATE
  12. LACTULOSE [Concomitant]
     Active Substance: LACTULOSE

REACTIONS (3)
  - Hyperammonaemia [Recovering/Resolving]
  - Pneumonia adenoviral [Unknown]
  - Fungaemia [Fatal]
